FAERS Safety Report 8430460-0 (Version None)
Quarter: 2012Q2

REPORT INFORMATION
  Report Type: 
  Country: None (occurrence: None)
  Receive Date: 20120612
  Receipt Date: 20120601
  Transmission Date: 20120825
  Serious: Yes (Death, Other)
  Sender: FDA-Public Use
  Company Number: RU-ACTELION-A-CH2012-66596

PATIENT
  Sex: Female

DRUGS (5)
  1. DIURETICS [Concomitant]
  2. CARDIAC THERAPY [Concomitant]
  3. TRACLEER [Suspect]
     Indication: PULMONARY ARTERIAL HYPERTENSION
     Dosage: 62.5 MG, BID
     Route: 048
     Dates: start: 20120322
  4. SILDENAFIL [Concomitant]
  5. ANTIBIOTICS [Concomitant]

REACTIONS (12)
  - COUGH [None]
  - HYDROTHORAX [None]
  - CIRCULATORY COLLAPSE [None]
  - CARDIAC FAILURE ACUTE [None]
  - BODY TEMPERATURE INCREASED [None]
  - PULMONARY OEDEMA [None]
  - PERICARDIAL EFFUSION [None]
  - CONCOMITANT DISEASE AGGRAVATED [None]
  - BRAIN OEDEMA [None]
  - MULTI-ORGAN FAILURE [None]
  - PNEUMONIA [None]
  - OLIGURIA [None]
